FAERS Safety Report 15150181 (Version 1)
Quarter: 2018Q3

REPORT INFORMATION
  Report Type: Spontaneous
  Country: FR (occurrence: FR)
  Receive Date: 20180716
  Receipt Date: 20180716
  Transmission Date: 20181010
  Serious: Yes (Disabling)
  Sender: FDA-Public Use
  Company Number: FR-TEVA-2018-FR-927000

PATIENT
  Age: 81 Year
  Sex: Female
  Weight: 47 kg

DRUGS (14)
  1. CIFLOX [Concomitant]
     Active Substance: CIPROFLOXACIN
  2. GRANOCYTE [Concomitant]
     Active Substance: LENOGRASTIM
  3. DACARBAZINE MEDAC 500 MG, POUDRE POUR SOLUTION POUR PERFUSION [Suspect]
     Active Substance: DACARBAZINE CITRATE
     Indication: HODGKIN^S DISEASE
     Route: 042
     Dates: start: 20140811, end: 20150120
  4. CORTANCYL 20 MG, COMPRIM? [Concomitant]
     Active Substance: PREDNISONE
  5. INEXIUM 20 MG, COMPRIM? GASTRO?R?SISTANT [Concomitant]
     Active Substance: ESOMEPRAZOLE MAGNESIUM
  6. FASTURTEC [Concomitant]
     Active Substance: RASBURICASE
  7. DOXORUBICINE TEVA [Suspect]
     Active Substance: DOXORUBICIN
     Indication: HODGKIN^S DISEASE
     Route: 042
     Dates: start: 20140811, end: 20150120
  8. ZELITREX 500 MG, COMPRIM? ENROB? [Concomitant]
     Active Substance: VALACYCLOVIR HYDROCHLORIDE
  9. ZOPHREN 8 MG, COMPRIM? PELLICUL? [Concomitant]
  10. AUGMENTIN [Concomitant]
     Active Substance: AMOXICILLIN\CLAVULANATE POTASSIUM
  11. LEVOTHYROX [Concomitant]
     Active Substance: LEVOTHYROXINE
  12. BACTRIM [Concomitant]
     Active Substance: SULFAMETHOXAZOLE\TRIMETHOPRIM
  13. PRIMPERAN [Concomitant]
     Active Substance: METOCLOPRAMIDE HYDROCHLORIDE
  14. VELBE 10 MG, POUDRE POUR SOLUTION INJECTABLE I.V. [Suspect]
     Active Substance: VINBLASTINE SULFATE
     Indication: HODGKIN^S DISEASE
     Route: 042
     Dates: start: 20140811, end: 20150120

REACTIONS (1)
  - Deafness bilateral [Not Recovered/Not Resolved]

NARRATIVE: CASE EVENT DATE: 2015
